FAERS Safety Report 9927038 (Version 1)
Quarter: 2014Q1

REPORT INFORMATION
  Report Type: Spontaneous
  Country: US (occurrence: US)
  Receive Date: 20140226
  Receipt Date: 20140226
  Transmission Date: 20141002
  Serious: No
  Sender: FDA-Public Use
  Company Number: US-AMGEN-USASP2013091649

PATIENT
  Age: 50 Year
  Sex: Male

DRUGS (3)
  1. ENBREL [Suspect]
     Indication: PSORIATIC ARTHROPATHY
     Dosage: 50 MILLIGRAMS  ONCE A WEEK
     Route: 065
     Dates: start: 20050325, end: 201312
  2. KEFLEX /00145501/ [Suspect]
     Indication: INGROWING NAIL
     Dosage: UNK
     Route: 065
  3. KEFLEX /00145501/ [Suspect]
     Indication: POST PROCEDURAL COMPLICATION

REACTIONS (8)
  - Ingrowing nail [Not Recovered/Not Resolved]
  - Post procedural complication [Not Recovered/Not Resolved]
  - Palpitations [Recovered/Resolved]
  - Weight increased [Not Recovered/Not Resolved]
  - Blood glucose increased [Not Recovered/Not Resolved]
  - Erythema [Not Recovered/Not Resolved]
  - Local swelling [Not Recovered/Not Resolved]
  - Pain in extremity [Not Recovered/Not Resolved]
